FAERS Safety Report 6339876-X (Version None)
Quarter: 2009Q3

REPORT INFORMATION
  Report Type: 
  Country: None (occurrence: None)
  Receive Date: 20090903
  Receipt Date: 20090824
  Transmission Date: 20100115
  Serious: Yes (Hospitalization, Disabling, Other)
  Sender: FDA-Public Use
  Company Number: TR-GILEAD-2009-0023587

PATIENT
  Sex: Female
  Weight: 60 kg

DRUGS (1)
  1. VIREAD [Suspect]
     Indication: HEPATITIS B
     Route: 048
     Dates: start: 20081127

REACTIONS (4)
  - BONE PAIN [None]
  - OSTEOPENIA [None]
  - OSTEOPOROSIS [None]
  - PAIN [None]
